FAERS Safety Report 7866907-8 (Version None)
Quarter: 2011Q4

REPORT INFORMATION
  Report Type: 
  Country: None (occurrence: None)
  Receive Date: 20111028
  Receipt Date: 20111026
  Transmission Date: 20120403
  Serious: Yes (Death, Hospitalization)
  Sender: FDA-Public Use
  Company Number: US-ABBOTT-11P-163-0867119-00

PATIENT
  Sex: Male
  Weight: 70.37 kg

DRUGS (7)
  1. ZEMPLAR [Suspect]
     Dates: start: 20090401, end: 20091101
  2. ZEMPLAR [Suspect]
     Dates: start: 20110101, end: 20110501
  3. ZEMPLAR [Suspect]
     Dates: start: 20091101, end: 20101101
  4. ZEMPLAR [Suspect]
     Dates: start: 20101101, end: 20110101
  5. ZEMPLAR [Suspect]
     Indication: HYPERPARATHYROIDISM
     Dates: start: 20071128, end: 20080101
  6. ZOCOR [Concomitant]
     Indication: HYPERLIPIDAEMIA
     Dates: end: 20110518
  7. ZEMPLAR [Suspect]
     Dates: start: 20080101, end: 20081101

REACTIONS (5)
  - DYSPNOEA [None]
  - MALAISE [None]
  - RENAL FAILURE [None]
  - CHRONIC OBSTRUCTIVE PULMONARY DISEASE [None]
  - DIABETES MELLITUS [None]
